FAERS Safety Report 10158750 (Version 1)
Quarter: 2014Q2

REPORT INFORMATION
  Report Type: Spontaneous
  Country: US (occurrence: US)
  Receive Date: 20140508
  Receipt Date: 20140508
  Transmission Date: 20141212
  Serious: No
  Sender: FDA-Public Use
  Company Number: US-BIOGENIDEC-2014BI037934

PATIENT
  Age: 65 Year
  Sex: Male

DRUGS (20)
  1. TECFIDERA [Suspect]
     Indication: PRODUCT USED FOR UNKNOWN INDICATION
     Dates: start: 20131006
  2. TYSABRI [Concomitant]
     Indication: PRODUCT USED FOR UNKNOWN INDICATION
  3. AMPYRA [Concomitant]
     Indication: PRODUCT USED FOR UNKNOWN INDICATION
     Route: 048
     Dates: start: 201107
  4. VITAMIN D3 [Concomitant]
  5. LOSARTAN HCT [Concomitant]
  6. FENOFIBRATE [Concomitant]
  7. TAMSULOSIN HYDROCHLORIDE [Concomitant]
  8. ZOLPIDEM TARTRATE [Concomitant]
  9. VENLAFAXINE [Concomitant]
     Indication: DEPRESSED MOOD
  10. REBIF [Concomitant]
     Indication: MULTIPLE SCLEROSIS
  11. REBIF [Concomitant]
     Indication: MULTIPLE SCLEROSIS
     Route: 058
  12. AMITRIPTYLINE HCL [Concomitant]
  13. GABAPENTIN [Concomitant]
  14. BACLOFEN [Concomitant]
  15. HYDROCODONE BITARTRATE AND ACETAMINOPHEN [Concomitant]
     Indication: PAIN
  16. METFORMIN HYDROCHLORIDE [Concomitant]
     Indication: TYPE 2 DIABETES MELLITUS
  17. DOCUSATE SODIUM [Concomitant]
  18. TRILEPTAL [Concomitant]
  19. MINOCYCLINE [Concomitant]
  20. LYRICA [Concomitant]

REACTIONS (7)
  - Benign salivary gland neoplasm [Unknown]
  - Multiple sclerosis [Unknown]
  - Vision blurred [Unknown]
  - Dysphagia [Unknown]
  - Visual impairment [Unknown]
  - Frustration [Unknown]
  - Muscle spasms [Unknown]
